FAERS Safety Report 9841139 (Version 2)
Quarter: 2014Q1

REPORT INFORMATION
  Report Type: Spontaneous
  Country: US (occurrence: None)
  Receive Date: 20131223
  Receipt Date: 20140228
  Transmission Date: 20141002
  Serious: No
  Sender: FDA-Public Use
  Company Number: 221646LEO

PATIENT
  Age: 44 Year
  Sex: Male

DRUGS (1)
  1. PICATO [Suspect]
     Indication: SKIN DISORDER
     Route: 061
     Dates: start: 20130429, end: 20130501

REACTIONS (4)
  - Application site erythema [None]
  - Application site vesicles [None]
  - Headache [None]
  - Incorrect drug administration duration [None]
